FAERS Safety Report 5023769-4 (Version None)
Quarter: 2006Q2

REPORT INFORMATION
  Report Type: 
  Country: None (occurrence: None)
  Receive Date: 20060606
  Receipt Date: 20060523
  Transmission Date: 20061013
  Serious: Yes (Hospitalization)
  Sender: FDA-Public Use
  Company Number: 2006BI005473

PATIENT
  Age: 52 Year
  Sex: Male

DRUGS (7)
  1. AVONEX [Suspect]
     Indication: MULTIPLE SCLEROSIS
     Dosage: 30 UG; QW; IM
     Route: 030
     Dates: start: 20020101, end: 20030801
  2. AVONEX [Suspect]
     Indication: MULTIPLE SCLEROSIS
     Dosage: 30 UG; QW; IM
     Route: 030
     Dates: start: 20030801
  3. ARICEPT [Concomitant]
  4. AMANTADINE HCL [Concomitant]
  5. TRAZODONE HCL [Concomitant]
  6. B12 [Concomitant]
  7. MULTI-VITAMIN [Concomitant]

REACTIONS (1)
  - ARTHRITIS [None]
